FAERS Safety Report 17241443 (Version 1)
Quarter: 2020Q1

REPORT INFORMATION
  Report Type: Spontaneous
  Country: BR (occurrence: BR)
  Receive Date: 20200107
  Receipt Date: 20200107
  Transmission Date: 20200409
  Serious: Yes (Other)
  Sender: FDA-Public Use
  Company Number: BR-ACTELION-A-CH2019-199923

PATIENT
  Age: 47 Year
  Sex: Female

DRUGS (1)
  1. ZAVESCA [Suspect]
     Active Substance: MIGLUSTAT
     Indication: GAUCHER^S DISEASE TYPE I
     Dosage: 300 MG, QD
     Route: 048

REACTIONS (4)
  - Abnormal loss of weight [Unknown]
  - Strongyloidiasis [Unknown]
  - Lactose intolerance [Unknown]
  - Diarrhoea [Unknown]
